FAERS Safety Report 22109264 (Version 1)
Quarter: 2023Q1

REPORT INFORMATION
  Report Type: Spontaneous
  Country: US (occurrence: US)
  Receive Date: 20230317
  Receipt Date: 20230317
  Transmission Date: 20230417
  Serious: No
  Sender: FDA-Public Use
  Company Number: US-SA-SAC20230315001516

PATIENT
  Age: 52 Year
  Sex: Male

DRUGS (1)
  1. DUPIXENT [Suspect]
     Active Substance: DUPILUMAB
     Dosage: 300 MG: FREQUENCY; OTHER
     Route: 058

REACTIONS (2)
  - Eye swelling [Recovered/Resolved]
  - Lack of injection site rotation [Unknown]

NARRATIVE: CASE EVENT DATE: 20230101
